FAERS Safety Report 8524161-8 (Version None)
Quarter: 2012Q3

REPORT INFORMATION
  Report Type: 
  Country: None (occurrence: None)
  Receive Date: 20120720
  Receipt Date: 20120716
  Transmission Date: 20120928
  Serious: Yes (Other)
  Sender: FDA-Public Use
  Company Number: US-PFIZER INC-2012147527

PATIENT
  Sex: Female
  Weight: 67.12 kg

DRUGS (10)
  1. ZYVOX [Suspect]
     Indication: INFECTION
     Dosage: 600 MG, 2X/DAY
     Route: 042
     Dates: start: 20120201, end: 20120201
  2. ACETYLSALICYLIC ACID [Concomitant]
     Dosage: 81 MG, UNK
  3. ZYVOX [Suspect]
     Indication: CARDIAC INFECTION
  4. LIPITOR [Suspect]
     Indication: BLOOD CHOLESTEROL ABNORMAL
  5. ZETIA [Concomitant]
     Indication: BLOOD CHOLESTEROL ABNORMAL
     Dosage: 10 MG, DAILY
  6. ZYVOX [Suspect]
     Indication: MALAISE
  7. PLAVIX [Concomitant]
     Dosage: 75 MG, UNK
  8. METOPROLOL [Concomitant]
     Indication: BLOOD PRESSURE ABNORMAL
     Dosage: 100 MG, UNK
  9. LIPITOR [Suspect]
     Indication: BLOOD CHOLESTEROL INCREASED
     Dosage: 20 MG, 1X/DAY
     Route: 048
  10. LEVOTHYROXINE [Concomitant]
     Dosage: 100 UG, UNK

REACTIONS (6)
  - CORONARY ARTERY OCCLUSION [None]
  - RENAL DISORDER [None]
  - INFECTION [None]
  - CYSTITIS [None]
  - CARDIAC VALVE DISEASE [None]
  - MALAISE [None]
